FAERS Safety Report 9061762 (Version 2)
Quarter: 2013Q1

REPORT INFORMATION
  Report Type: Spontaneous
  Country: US (occurrence: None)
  Receive Date: 20130122
  Receipt Date: 20130225
  Transmission Date: 20140127
  Serious: Yes (Death, Hospitalization, Other)
  Sender: FDA-Public Use
  Company Number: CLHC20130003

PATIENT
  Age: 17 Year
  Sex: Female

DRUGS (4)
  1. COLCHICINE [Suspect]
     Indication: PRODUCT USED FOR UNKNOWN INDICATION
     Dosage: UNKNOWN,  UNKNOWN,  ORAL?UNKNOWN  -  /  / 2011
     Route: 048
     Dates: end: 2011
  2. SILDENAFIL [Suspect]
     Indication: PRODUCT USED FOR UNKNOWN INDICATION
     Dosage: UNKNOWN,  UNKNOWN,  ORAL?UNKNOWN  -  /  / 2011
     Route: 048
     Dates: end: 2011
  3. SALICYLATE [Suspect]
     Indication: PRODUCT USED FOR UNKNOWN INDICATION
     Dosage: UNKNOWN,  UNKNOWN,  ORAL?UNKNOWN  -  /  / 2011
     Route: 048
     Dates: end: 2011
  4. MANY PSYCHIATRIC MEDICATIONS [Concomitant]

REACTIONS (16)
  - Completed suicide [None]
  - Dysarthria [None]
  - Mental status changes [None]
  - Pyrexia [None]
  - Blood calcium decreased [None]
  - Blood magnesium decreased [None]
  - Platelet count decreased [None]
  - Ammonia increased [None]
  - Blood lactic acid increased [None]
  - Coagulopathy [None]
  - Hypotension [None]
  - Multi-organ failure [None]
  - Aspartate aminotransferase increased [None]
  - Alanine aminotransferase increased [None]
  - Heart rate increased [None]
  - Blood creatinine increased [None]
